FAERS Safety Report 17370495 (Version 3)
Quarter: 2020Q3

REPORT INFORMATION
  Report Type: Spontaneous
  Country: FR (occurrence: FR)
  Receive Date: 20200205
  Receipt Date: 20200904
  Transmission Date: 20201102
  Serious: Yes (Death)
  Sender: FDA-Public Use
  Company Number: FR-TEVA-2020-FR-1181162

PATIENT
  Age: 78 Year
  Sex: Female
  Weight: 90 kg

DRUGS (6)
  1. PREDNISONE. [Suspect]
     Active Substance: PREDNISONE
     Indication: POLYARTHRITIS
     Dosage: 10MG / D THEN 1MG / WEEK FROM 09/7
     Route: 048
     Dates: start: 20190522, end: 201910
  2. OPDIVO [Suspect]
     Active Substance: NIVOLUMAB
     Indication: METASTATIC MALIGNANT MELANOMA
     Dosage: 480 MILLIGRAM
     Route: 042
     Dates: start: 20190206
  3. HYDROCORTANCYL 2,5 POUR CENT, SUSPENSION INJECTABLE [Concomitant]
     Active Substance: PREDNISOLONE ACETATE
     Indication: ARTHRALGIA
     Dosage: 0.5 DOSAGE FORM
     Route: 014
     Dates: start: 20190926, end: 20190926
  4. TRAMADOL BASE [Concomitant]
     Active Substance: TRAMADOL
     Indication: PAIN
     Dosage: UNKNOWN
     Route: 048
     Dates: start: 20191023
  5. SPECIAFOLDINE 5 MG, COMPRIME [Suspect]
     Active Substance: FOLIC ACID
     Indication: VITAMIN SUPPLEMENTATION
     Dosage: 15 MILLIGRAM
     Route: 048
     Dates: start: 201907, end: 20191218
  6. IMETH [Suspect]
     Active Substance: METHOTREXATE SODIUM
     Indication: POLYARTHRITIS
     Dosage: 15 MILLIGRAM
     Route: 048
     Dates: start: 20190709, end: 20191218

REACTIONS (1)
  - Neoplasm progression [Fatal]

NARRATIVE: CASE EVENT DATE: 20191211
